FAERS Safety Report 16005919 (Version 1)
Quarter: 2019Q1

REPORT INFORMATION
  Report Type: Spontaneous
  Country: US (occurrence: US)
  Receive Date: 20190130
  Receipt Date: 20190130
  Transmission Date: 20190418
  Serious: No
  Sender: FDA-Public Use
  Company Number: None

PATIENT
  Age: 57 Year
  Sex: Male

DRUGS (10)
  1. ZYTIGA [Suspect]
     Active Substance: ABIRATERONE ACETATE
     Indication: PROSTATE CANCER
     Route: 048
     Dates: start: 20180919
  2. TYLENOL [Concomitant]
     Active Substance: ACETAMINOPHEN
  3. CALCI8UM +D [Concomitant]
  4. ZOFRAN [Concomitant]
     Active Substance: ONDANSETRON HYDROCHLORIDE
  5. MORPHINE [Concomitant]
     Active Substance: MORPHINE
  6. ZINC. [Concomitant]
     Active Substance: ZINC
  7. GRAPE SEED OIL [Concomitant]
  8. LUPRON [Concomitant]
     Active Substance: LEUPROLIDE ACETATE
  9. MAGNESIUM [Concomitant]
     Active Substance: MAGNESIUM
  10. PREDNISONE. [Concomitant]
     Active Substance: PREDNISONE

REACTIONS (4)
  - Nausea [None]
  - Vomiting [None]
  - Therapy cessation [None]
  - Abdominal pain [None]
